FAERS Safety Report 8426389-4 (Version None)
Quarter: 2012Q2

REPORT INFORMATION
  Report Type: 
  Country: None (occurrence: None)
  Receive Date: 20120611
  Receipt Date: 20120530
  Transmission Date: 20120825
  Serious: Yes (Death, Other)
  Sender: FDA-Public Use
  Company Number: US-SANOFI-AVENTIS-2012SA038704

PATIENT
  Age: 67 Year
  Sex: Female

DRUGS (1)
  1. PLAVIX [Suspect]
     Route: 048
     Dates: start: 20000101

REACTIONS (5)
  - LUNG DISORDER [None]
  - DIEULAFOY'S VASCULAR MALFORMATION [None]
  - MYOCARDIAL INFARCTION [None]
  - GASTROINTESTINAL HAEMORRHAGE [None]
  - CORONARY ARTERY OCCLUSION [None]
